FAERS Safety Report 4523636-6 (Version None)
Quarter: 2004Q4

REPORT INFORMATION
  Report Type: 
  Country: None (occurrence: None)
  Receive Date: 20041210
  Receipt Date: 20041210
  Transmission Date: 20050328
  Serious: Yes (Other)
  Sender: FDA-Public Use
  Company Number: None

PATIENT
  Age: 24 Year
  Sex: Female
  Weight: 49.8957 kg

DRUGS (1)
  1. ACCUTANE [Suspect]

REACTIONS (3)
  - ALOPECIA [None]
  - HYPOTRICHOSIS [None]
  - URINARY TRACT INFECTION [None]
